FAERS Safety Report 21489839 (Version 3)
Quarter: 2022Q4

REPORT INFORMATION
  Report Type: Spontaneous
  Country: JP (occurrence: JP)
  Receive Date: 20221021
  Receipt Date: 20221201
  Transmission Date: 20230112
  Serious: Yes (Life-Threatening, Hospitalization, Other)
  Sender: FDA-Public Use
  Company Number: JP-BRISTOL-MYERS SQUIBB COMPANY-BMS-2020-091267

PATIENT
  Age: 56 Year
  Sex: Male
  Weight: 48 kg

DRUGS (14)
  1. OPDIVO [Suspect]
     Active Substance: NIVOLUMAB
     Indication: Head and neck cancer
     Dosage: 240 MILLIGRAM
     Route: 041
     Dates: start: 20191120, end: 20220727
  2. AMBROXOL HYDROCHLORIDE [Concomitant]
     Active Substance: AMBROXOL HYDROCHLORIDE
     Indication: Product used for unknown indication
     Dosage: 15 MG, Q12H
     Route: 048
     Dates: start: 20201104
  3. DEXTROMETHORPHAN HYDROBROMIDE [Concomitant]
     Active Substance: DEXTROMETHORPHAN HYDROBROMIDE
     Indication: Product used for unknown indication
     Dosage: 15 MG, EVERYDAY
     Route: 048
     Dates: start: 20200805
  4. MAGNESIUM OXIDE [Concomitant]
     Active Substance: MAGNESIUM OXIDE
     Indication: Product used for unknown indication
     Dosage: 660 MG, Q8H
     Route: 048
  5. SODIUM FERROUS CITRATE [Concomitant]
     Active Substance: SODIUM FERROUS CITRATE
     Indication: Product used for unknown indication
     Dosage: 50 MG, Q12H
     Route: 048
  6. MIYA-BM [Concomitant]
     Active Substance: CLOSTRIDIUM BUTYRICUM SPORES STRAIN M-55
     Indication: Product used for unknown indication
     Dosage: 40 MG, Q8H
     Route: 048
  7. PREDNISOLONE [Concomitant]
     Active Substance: PREDNISOLONE
     Indication: Product used for unknown indication
     Dosage: 2.5 MG, Q8H
     Route: 048
     Dates: start: 20211016
  8. METHYLCOBALAMIN [Concomitant]
     Active Substance: METHYLCOBALAMIN
     Indication: Product used for unknown indication
     Dosage: 500 MG, Q8H
     Route: 048
  9. NITROFURANTOIN [Concomitant]
     Active Substance: NITROFURANTOIN
     Indication: Product used for unknown indication
     Dosage: 75 MG, Q12H
     Route: 048
  10. WARFARIN [Concomitant]
     Active Substance: WARFARIN
     Dosage: UNK
     Route: 048
  11. LEVOTHYROXINE SODIUM [Concomitant]
     Active Substance: LEVOTHYROXINE SODIUM
     Indication: Product used for unknown indication
     Dosage: EVERYDAY
     Route: 048
     Dates: start: 20200213
  12. CALONAL [Concomitant]
     Active Substance: ACETAMINOPHEN
     Indication: Product used for unknown indication
     Route: 048
  13. REBAMIPIDE [Concomitant]
     Active Substance: REBAMIPIDE
     Indication: Product used for unknown indication
     Route: 048
     Dates: start: 20200321
  14. SYMPROIC [Concomitant]
     Active Substance: NALDEMEDINE
     Indication: Product used for unknown indication
     Dosage: EVERYDAY
     Route: 048
     Dates: start: 20200321

REACTIONS (32)
  - Disseminated intravascular coagulation [Unknown]
  - Decreased appetite [Unknown]
  - Dysstasia [Unknown]
  - Pancytopenia [Unknown]
  - Tongue haemorrhage [Unknown]
  - Diverticulum intestinal haemorrhagic [Unknown]
  - Haemorrhoidal haemorrhage [Unknown]
  - Anal fissure haemorrhage [Unknown]
  - Cerebral venous sinus thrombosis [Unknown]
  - Polymyalgia rheumatica [Unknown]
  - Ascites [Recovering/Resolving]
  - Pneumonia [Unknown]
  - Haemophagocytic lymphohistiocytosis [Recovering/Resolving]
  - Pyrexia [Unknown]
  - Autoimmune pancreatitis [Recovered/Resolved]
  - Faeces pale [Recovered/Resolved]
  - Serum ferritin increased [Unknown]
  - Blood triglycerides increased [Unknown]
  - Interleukin-2 receptor increased [Unknown]
  - Prothrombin time prolonged [Unknown]
  - Calculus urinary [Recovered/Resolved]
  - Haematoma muscle [Unknown]
  - Mesenteric panniculitis [Unknown]
  - Diverticulum intestinal [Unknown]
  - Renal cyst [Unknown]
  - Lung opacity [Unknown]
  - Splenomegaly [Unknown]
  - Mass [Unknown]
  - Blood lactate dehydrogenase increased [Unknown]
  - Pleural effusion [Recovering/Resolving]
  - Haemorrhagic diathesis [Unknown]
  - Shock [Unknown]

NARRATIVE: CASE EVENT DATE: 20200118
